FAERS Safety Report 9932550 (Version 1)
Quarter: 2014Q1

REPORT INFORMATION
  Report Type: Report from Study
  Country: FR (occurrence: FR)
  Receive Date: 20140228
  Receipt Date: 20140228
  Transmission Date: 20141002
  Serious: Yes (Other)
  Sender: FDA-Public Use
  Company Number: FR-ROCHE-1355749

PATIENT
  Sex: Female

DRUGS (10)
  1. RITUXIMAB [Suspect]
     Indication: RHEUMATOID ARTHRITIS
     Dosage: ON 31-OCT-2008: RECEIVED DAY 15 DOSE
     Route: 041
     Dates: start: 20081017, end: 20100104
  2. RITUXIMAB [Suspect]
     Dosage: RESTARTED
     Route: 041
     Dates: start: 20111022
  3. RITUXIMAB [Suspect]
     Route: 041
     Dates: start: 20120404
  4. TOCILIZUMAB [Suspect]
     Indication: RHEUMATOID ARTHRITIS
     Route: 041
     Dates: start: 20100104
  5. TOCILIZUMAB [Suspect]
     Dosage: ON 20-MAY-2011, RECEIVED RECENT DOSE
     Route: 041
     Dates: start: 20100503
  6. CORTANCYL [Concomitant]
     Route: 065
     Dates: start: 20081031
  7. CORTANCYL [Concomitant]
     Route: 065
     Dates: start: 20100503
  8. SALAZOPYRINE [Concomitant]
  9. METHOTREXATE [Concomitant]
  10. MYFORTIC [Concomitant]
     Dosage: 2 TAB DAILY
     Route: 065
     Dates: start: 20120404

REACTIONS (8)
  - Xerophthalmia [Not Recovered/Not Resolved]
  - Arthritis [Recovered/Resolved]
  - Skin plaque [Recovered/Resolved]
  - Bronchopneumonia [Not Recovered/Not Resolved]
  - Rash [Not Recovered/Not Resolved]
  - Headache [Recovered/Resolved]
  - Malaise [Recovered/Resolved]
  - Respiratory disorder [Recovered/Resolved]
